FAERS Safety Report 4380494-0 (Version None)
Quarter: 2004Q2

REPORT INFORMATION
  Report Type: 
  Country: None (occurrence: None)
  Receive Date: 20040618
  Receipt Date: 20040607
  Transmission Date: 20050107
  Serious: Yes (Hospitalization, Other)
  Sender: FDA-Public Use
  Company Number: ES-JNJFOC-20040404954

PATIENT
  Age: 50 Year
  Sex: Male

DRUGS (4)
  1. REMICADE [Suspect]
     Indication: RHEUMATOID ARTHRITIS
     Route: 042
  2. METHOTREXATE [Concomitant]
     Route: 058
  3. HYDROXYCHLOROQUINE SULFATE [Concomitant]
  4. DACORTIN [Concomitant]

REACTIONS (7)
  - ARTERIAL INJURY [None]
  - BILE DUCT OBSTRUCTION [None]
  - COMA [None]
  - MALIGNANT NEOPLASM OF AMPULLA OF VATER [None]
  - PANCREATITIS ACUTE [None]
  - PANCREATITIS NECROTISING [None]
  - POST PROCEDURAL COMPLICATION [None]
